FAERS Safety Report 25056529 (Version 3)
Quarter: 2025Q2

REPORT INFORMATION
  Report Type: Spontaneous
  Country: US (occurrence: US)
  Receive Date: 20250310
  Receipt Date: 20250417
  Transmission Date: 20250717
  Serious: No
  Sender: BAUSCH AND LOMB
  Company Number: US-BAUSCHBL-2025BNL003651

PATIENT
  Age: 72 Year
  Sex: Female
  Weight: 58.96 kg

DRUGS (5)
  1. LUMIFY [Suspect]
     Active Substance: BRIMONIDINE TARTRATE
     Indication: Ocular hyperaemia
     Route: 047
     Dates: start: 2021
  2. LUMIFY [Suspect]
     Active Substance: BRIMONIDINE TARTRATE
  3. RESTASIS [Concomitant]
     Active Substance: CYCLOSPORINE
     Indication: Dry eye
     Route: 065
     Dates: start: 2005
  4. BRIMONIDINE TARTRATE OPHTHALMIC SOLUTION (SANDOZ) [Concomitant]
     Indication: Product used for unknown indication
     Route: 065
  5. TIMOLOL MALEATE OPHTHALMIC SOLUTION (SANDOZ) [Concomitant]
     Indication: Product used for unknown indication
     Route: 065

REACTIONS (8)
  - Ocular hyperaemia [Unknown]
  - Eye pain [Unknown]
  - Hypersensitivity [Unknown]
  - Product odour abnormal [Unknown]
  - Product quality issue [Unknown]
  - Poor quality product administered [Unknown]
  - Inappropriate schedule of product administration [Unknown]
  - Product colour issue [Unknown]
